FAERS Safety Report 12476449 (Version 1)
Quarter: 2016Q2

REPORT INFORMATION
  Report Type: Spontaneous
  Country: CL (occurrence: CL)
  Receive Date: 20160617
  Receipt Date: 20160617
  Transmission Date: 20160815
  Serious: Yes (Other)
  Sender: FDA-Public Use
  Company Number: CL-009507513-1606CHL005450

PATIENT
  Age: 39 Year
  Sex: Female

DRUGS (1)
  1. IMPLANON [Suspect]
     Active Substance: ETONOGESTREL
     Dosage: UNK
     Route: 030
     Dates: start: 201105, end: 20160608

REACTIONS (5)
  - Incorrect route of drug administration [Unknown]
  - Device deployment issue [Recovering/Resolving]
  - Incorrect drug administration duration [Unknown]
  - Complication associated with device [Recovering/Resolving]
  - Device dislocation [Recovering/Resolving]

NARRATIVE: CASE EVENT DATE: 201105
